FAERS Safety Report 11442469 (Version 1)
Quarter: 2015Q3

REPORT INFORMATION
  Report Type: Report from Study
  Country: GB (occurrence: GB)
  Receive Date: 20150901
  Receipt Date: 20150901
  Transmission Date: 20151125
  Serious: Yes (Hospitalization)
  Sender: FDA-Public Use
  Company Number: GB-JNJFOC-20150418434

PATIENT
  Age: 44 Year
  Sex: Female

DRUGS (1)
  1. STELARA [Suspect]
     Active Substance: USTEKINUMAB
     Indication: PSORIASIS
     Route: 058
     Dates: start: 20120307

REACTIONS (10)
  - Lower respiratory tract infection [Not Recovered/Not Resolved]
  - Psoriasis [Unknown]
  - Insomnia [Unknown]
  - Fatigue [Unknown]
  - Nail infection [Unknown]
  - Oral herpes [Unknown]
  - Depression [Unknown]
  - Cough [Unknown]
  - Asthma [Unknown]
  - Weight increased [Unknown]

NARRATIVE: CASE EVENT DATE: 201312
